FAERS Safety Report 19708445 (Version 2)
Quarter: 2021Q3

REPORT INFORMATION
  Report Type: Spontaneous
  Country: US (occurrence: US)
  Receive Date: 20210817
  Receipt Date: 20210831
  Transmission Date: 20211014
  Serious: Yes (Other)
  Sender: FDA-Public Use
  Company Number: US-PFIZER INC-202100994364

PATIENT
  Age: 63 Year
  Sex: Male

DRUGS (18)
  1. XELJANZ XR [Suspect]
     Active Substance: TOFACITINIB CITRATE
     Dosage: 11 MG, 1X/DAY(11MG/TAKE 1 TABLET BY MOUTH ONCE DAILY).
     Route: 048
  2. FOLIC ACID. [Concomitant]
     Active Substance: FOLIC ACID
  3. VALACYCLOVIR HCL [Concomitant]
     Active Substance: VALACYCLOVIR HYDROCHLORIDE
  4. DILTIAZEM HCL [Concomitant]
     Active Substance: DILTIAZEM HYDROCHLORIDE
  5. NABUMETONE. [Concomitant]
     Active Substance: NABUMETONE
  6. NYSTATIN. [Concomitant]
     Active Substance: NYSTATIN
  7. TRIAMCINOLONE [Concomitant]
     Active Substance: TRIAMCINOLONE
  8. FLUOCINONIDE?E [Concomitant]
     Active Substance: FLUOCINONIDE
  9. AMBIEN [Concomitant]
     Active Substance: ZOLPIDEM TARTRATE
  10. EPIPEN [Concomitant]
     Active Substance: EPINEPHRINE
  11. VIAGRA [Concomitant]
     Active Substance: SILDENAFIL CITRATE
     Indication: ERECTILE DYSFUNCTION
  12. ZOLOFT [Concomitant]
     Active Substance: SERTRALINE HYDROCHLORIDE
  13. COLACE [Concomitant]
     Active Substance: DOCUSATE SODIUM
  14. ASPIRIN (E.C.) [Concomitant]
     Active Substance: ASPIRIN
  15. NUCYNTA [Concomitant]
     Active Substance: TAPENTADOL HYDROCHLORIDE
  16. SIMVASTATIN. [Concomitant]
     Active Substance: SIMVASTATIN
  17. HYDROCHLOROTHIAZIDE. [Concomitant]
     Active Substance: HYDROCHLOROTHIAZIDE
  18. METHOTREXATE SODIUM. [Concomitant]
     Active Substance: METHOTREXATE SODIUM

REACTIONS (1)
  - Chronic obstructive pulmonary disease [Unknown]
